FAERS Safety Report 23134312 (Version 2)
Quarter: 2023Q4

REPORT INFORMATION
  Report Type: Spontaneous
  Country: US (occurrence: US)
  Receive Date: 20231101
  Receipt Date: 20231113
  Transmission Date: 20240109
  Serious: Yes (Life-Threatening, Hospitalization)
  Sender: FDA-Public Use
  Company Number: US-TEVA-2023-US-2940269

PATIENT
  Age: 34 Year
  Sex: Male

DRUGS (1)
  1. SULFAMETHOXAZOLE\TRIMETHOPRIM [Suspect]
     Active Substance: SULFAMETHOXAZOLE\TRIMETHOPRIM
     Indication: Prostatitis
     Route: 065

REACTIONS (4)
  - Acute respiratory distress syndrome [Unknown]
  - Interstitial lung disease [Unknown]
  - Pneumomediastinum [Unknown]
  - Hypoxia [Unknown]
